FAERS Safety Report 25887920 (Version 1)
Quarter: 2025Q4

REPORT INFORMATION
  Report Type: Spontaneous
  Country: CA (occurrence: CA)
  Receive Date: 20251007
  Receipt Date: 20251007
  Transmission Date: 20260118
  Serious: Yes (Death)
  Sender: Kenvue
  Company Number: CA-KENVUE-20250916029

PATIENT

DRUGS (1)
  1. TYLENOL [Suspect]
     Active Substance: ACETAMINOPHEN
     Indication: Product used for unknown indication
     Dosage: USED FOR AN EXTENDED PERIOD
     Route: 065

REACTIONS (1)
  - Liver disorder [Fatal]
